FAERS Safety Report 10102112 (Version 1)
Quarter: 2014Q2

REPORT INFORMATION
  Report Type: Spontaneous
  Country: US (occurrence: None)
  Receive Date: 20140423
  Receipt Date: 20140423
  Transmission Date: 20141212
  Serious: Yes (Death)
  Sender: FDA-Public Use
  Company Number: None

PATIENT
  Age: 41 Year
  Sex: Female

DRUGS (3)
  1. BEVACIZUMAB [Suspect]
     Indication: OVARIAN CANCER
     Dates: start: 20130827, end: 20140125
  2. HEPARIN [Concomitant]
  3. TPA [Concomitant]

REACTIONS (6)
  - Hypotension [None]
  - Tachycardia [None]
  - Vomiting [None]
  - Intestinal perforation [None]
  - Pulmonary embolism [None]
  - Ovarian cancer [None]
